FAERS Safety Report 6829777-2 (Version None)
Quarter: 2010Q3

REPORT INFORMATION
  Report Type: 
  Country: None (occurrence: None)
  Receive Date: 20100709
  Receipt Date: 20080630
  Transmission Date: 20110219
  Serious: No
  Sender: FDA-Public Use
  Company Number: US-PFIZER INC-2007013265

PATIENT
  Sex: Female
  Weight: 58.06 kg

DRUGS (6)
  1. CHANTIX [Suspect]
     Indication: SMOKING CESSATION THERAPY
     Dates: start: 20070212
  2. ALPRAZOLAM [Concomitant]
     Indication: ANXIETY
  3. BUTALBITAL [Concomitant]
     Indication: PAIN
  4. ACETAMINOPHEN W/ CODEINE [Concomitant]
     Indication: PAIN
  5. TEGRETOL [Concomitant]
     Indication: CONVULSION
  6. ANTIEPILEPTICS [Concomitant]
     Indication: CONVULSION

REACTIONS (4)
  - HEADACHE [None]
  - INITIAL INSOMNIA [None]
  - MIDDLE INSOMNIA [None]
  - WEIGHT INCREASED [None]
